FAERS Safety Report 4283646-3 (Version None)
Quarter: 2004Q1

REPORT INFORMATION
  Report Type: 
  Country: None (occurrence: None)
  Receive Date: 20040202
  Receipt Date: 20030528
  Transmission Date: 20041129
  Serious: Yes (Hospitalization)
  Sender: FDA-Public Use
  Company Number: PL-ROCHE-338821

PATIENT
  Age: 52 Year
  Sex: Female
  Weight: 70 kg

DRUGS (14)
  1. MYCOPHENOLATE MOFETIL [Suspect]
     Route: 048
     Dates: start: 20021207, end: 20030317
  2. DACLIZUMAB [Suspect]
     Route: 042
     Dates: start: 20020828, end: 20020828
  3. DACLIZUMAB [Suspect]
     Dosage: FOR 4 DOSES.
     Route: 042
     Dates: start: 20020911, end: 20021023
  4. PREDNISONE [Suspect]
     Indication: DRUG USE FOR UNKNOWN INDICATION
     Route: 065
     Dates: start: 20020828, end: 20030318
  5. PREDNISONE [Suspect]
     Route: 065
     Dates: start: 20030319, end: 20030328
  6. PREDNISONE [Suspect]
     Route: 065
     Dates: start: 20030329
  7. TACROLIMUS [Suspect]
     Indication: DRUG USE FOR UNKNOWN INDICATION
     Route: 065
     Dates: start: 20021204, end: 20030519
  8. BISOPROLOL FUMARATE [Concomitant]
     Dates: start: 20020828
  9. RANITIDINE HYDROCHLORIDE [Concomitant]
     Dosage: STOPPED BETWEEN 16 MAR 03 TO 29 MAR 03.
     Route: 065
     Dates: start: 20020828
  10. NITRENDIPINE [Concomitant]
     Dates: start: 20030205
  11. OMEPRAZOLE [Concomitant]
     Dates: start: 20030317, end: 20030328
  12. FLUCONAZOLE [Concomitant]
     Dates: start: 20030328, end: 20030403
  13. ACYCLOVIR [Concomitant]
     Dates: start: 20030327, end: 20030402
  14. NYSTATIN [Concomitant]
     Dates: start: 20020828, end: 20030327

REACTIONS (11)
  - ALPHA HAEMOLYTIC STREPTOCOCCAL INFECTION [None]
  - BLOOD CREATININE INCREASED [None]
  - BRONCHOPNEUMONIA [None]
  - DEHYDRATION [None]
  - DIARRHOEA [None]
  - ESCHERICHIA INFECTION [None]
  - HAEMODIALYSIS [None]
  - HEPATITIS B SURFACE ANTIGEN POSITIVE [None]
  - SEPSIS [None]
  - TRANSPLANT REJECTION [None]
  - URINARY TRACT INFECTION [None]
